FAERS Safety Report 25802302 (Version 1)
Quarter: 2025Q3

REPORT INFORMATION
  Report Type: Spontaneous
  Country: US (occurrence: None)
  Receive Date: 20250912
  Receipt Date: 20250912
  Transmission Date: 20251020
  Serious: Yes (Death, Hospitalization)
  Sender: FDA-CTU
  Company Number: None

PATIENT
  Age: 78 Year
  Sex: Male

DRUGS (15)
  1. PIRFENIDONE [Suspect]
     Active Substance: PIRFENIDONE
     Indication: Idiopathic pulmonary fibrosis
     Dosage: 801MG QD ORAL
     Route: 048
     Dates: start: 20210317, end: 20250703
  2. LOSARTAN [Concomitant]
     Active Substance: LOSARTAN
  3. CARVEDILOL [Concomitant]
     Active Substance: CARVEDILOL
  4. DULOXETINE [Concomitant]
     Active Substance: DULOXETINE
  5. GABAPENTIN [Concomitant]
     Active Substance: GABAPENTIN
  6. FUROSEMIDE [Concomitant]
     Active Substance: FUROSEMIDE
  7. DABIGATRAN [Concomitant]
     Active Substance: DABIGATRAN
  8. MAGNESIUM CHLORIDE [Concomitant]
     Active Substance: MAGNESIUM CHLORIDE
  9. METFORMIN [Concomitant]
     Active Substance: METFORMIN HYDROCHLORIDE
  10. duonex [Concomitant]
  11. PREDNISONE [Concomitant]
     Active Substance: PREDNISONE
  12. LORAZEPAM [Concomitant]
     Active Substance: LORAZEPAM
  13. albuterol BPA [Concomitant]
  14. HYDROCHLOROTHIAZIDE\TRIAMTERENE [Concomitant]
     Active Substance: HYDROCHLOROTHIAZIDE\TRIAMTERENE
  15. FINASTERIDE [Concomitant]
     Active Substance: FINASTERIDE

REACTIONS (3)
  - Chronic respiratory failure [None]
  - Idiopathic pulmonary fibrosis [None]
  - Pneumonia [None]

NARRATIVE: CASE EVENT DATE: 20250629
